FAERS Safety Report 15910040 (Version 1)
Quarter: 2019Q1

REPORT INFORMATION
  Report Type: Spontaneous
  Country: FR (occurrence: FR)
  Receive Date: 20190204
  Receipt Date: 20190204
  Transmission Date: 20190417
  Serious: Yes (Other)
  Sender: FDA-Public Use
  Company Number: FR-MYLANLABS-2019M1007462

PATIENT
  Age: 83 Year
  Sex: Male

DRUGS (4)
  1. CANDESARTAN MYLAN PHARMA [Suspect]
     Active Substance: CANDESARTAN CILEXETIL
     Dosage: 32 MILLIGRAM
  2. LERCANIDIPINE MYLAN 10 MG, COMPRIM? PELLICUL? S?CABLE [Suspect]
     Active Substance: LERCANIDIPINE HYDROCHLORIDE
     Indication: PRODUCT USED FOR UNKNOWN INDICATION
     Dosage: UNK
  3. CANDESARTAN MYLAN PHARMA [Suspect]
     Active Substance: CANDESARTAN CILEXETIL
     Dosage: UNK, DOUBLED
  4. CANDESARTAN MYLAN PHARMA [Suspect]
     Active Substance: CANDESARTAN CILEXETIL
     Indication: PRODUCT USED FOR UNKNOWN INDICATION
     Dosage: 1 DOSAGE FORM, QD

REACTIONS (4)
  - Asthenia [Unknown]
  - Dizziness [Unknown]
  - Arrhythmia [Unknown]
  - Hypotension [Unknown]
